FAERS Safety Report 9782015 (Version 3)
Quarter: 2014Q1

REPORT INFORMATION
  Report Type: Spontaneous
  Country: JP (occurrence: JP)
  Receive Date: 20131225
  Receipt Date: 20140225
  Transmission Date: 20141002
  Serious: Yes (Other)
  Sender: FDA-Public Use
  Company Number: JP-BRISTOL-MYERS SQUIBB COMPANY-19820596

PATIENT
  Age: 54 Year
  Sex: Male

DRUGS (6)
  1. METGLUCO [Suspect]
     Indication: TYPE 2 DIABETES MELLITUS
     Dosage: 750 MG FROM 27-JAN-2012. 18-MAY-2012- 1500MG?18-MAY-2013 TO JULY 2013?250 MG.
     Route: 048
     Dates: start: 20120127, end: 20130713
  2. LIOVEL [Concomitant]
     Indication: DIABETES MELLITUS
     Route: 048
     Dates: start: 20120622
  3. OLMETEC [Concomitant]
     Route: 048
  4. CRESTOR [Concomitant]
     Indication: DYSLIPIDAEMIA
     Route: 048
     Dates: start: 20120127
  5. BASEN [Concomitant]
     Indication: DIABETES MELLITUS
     Route: 048
     Dates: start: 20120127
  6. VILDAGLIPTIN [Concomitant]

REACTIONS (2)
  - Lactic acidosis [Recovered/Resolved]
  - Acute prerenal failure [Recovering/Resolving]
